FAERS Safety Report 9720706 (Version 1)
Quarter: 2013Q4

REPORT INFORMATION
  Report Type: Report from Study
  Country: BR (occurrence: BR)
  Receive Date: 20131129
  Receipt Date: 20131129
  Transmission Date: 20140711
  Serious: Yes (Hospitalization)
  Sender: FDA-Public Use
  Company Number: PHHY2013BR137919

PATIENT
  Sex: Female
  Weight: 63 kg

DRUGS (2)
  1. RITALIN LA [Suspect]
     Indication: DISTURBANCE IN ATTENTION
     Dosage: 1 DF, QD (IN THE MORNING)
     Dates: start: 201310
  2. VENLIFT [Concomitant]
     Dosage: UNK UKN, UNK

REACTIONS (4)
  - Abnormal behaviour [Recovering/Resolving]
  - Malaise [Recovering/Resolving]
  - Vomiting [Recovering/Resolving]
  - Drug intolerance [Recovering/Resolving]
